FAERS Safety Report 19757763 (Version 14)
Quarter: 2023Q2

REPORT INFORMATION
  Report Type: Report from Study
  Country: US (occurrence: US)
  Receive Date: 20210828
  Receipt Date: 20230615
  Transmission Date: 20230722
  Serious: Yes (Hospitalization)
  Sender: FDA-Public Use
  Company Number: NVSC2021US193616

PATIENT
  Sex: Female
  Weight: 76.19 kg

DRUGS (9)
  1. TREPROSTINIL [Suspect]
     Active Substance: TREPROSTINIL
     Indication: Pulmonary arterial hypertension
     Dosage: 89 NG/KG/MIN, CONT
     Route: 042
     Dates: start: 20210723
  2. TREPROSTINIL [Suspect]
     Active Substance: TREPROSTINIL
     Dosage: 89 NG/KG/MIN, CONT
     Route: 042
  3. TREPROSTINIL [Suspect]
     Active Substance: TREPROSTINIL
     Dosage: 96 NG/KG/MIN, CONT
     Route: 042
  4. TREPROSTINIL [Suspect]
     Active Substance: TREPROSTINIL
     Dosage: 100 NG/KG/MIN, CONT
     Route: 042
  5. TREPROSTINIL [Suspect]
     Active Substance: TREPROSTINIL
     Dosage: 100 NG/KG/MIN, CONT
     Route: 042
  6. TREPROSTINIL [Suspect]
     Active Substance: TREPROSTINIL
     Dosage: 100 NG/KG/MIN, CONT
     Route: 042
  7. TREPROSTINIL [Suspect]
     Active Substance: TREPROSTINIL
     Dosage: 104 NG/KG/MIN, CONT
     Route: 042
  8. OPSUMIT [Concomitant]
     Active Substance: MACITENTAN
     Indication: Product used for unknown indication
     Dosage: UNK
     Route: 065
  9. TADALAFIL [Concomitant]
     Active Substance: TADALAFIL
     Indication: Product used for unknown indication
     Dosage: UNK
     Route: 065

REACTIONS (13)
  - Fluid retention [Unknown]
  - Device dislocation [Unknown]
  - Device leakage [Unknown]
  - Generalised oedema [Unknown]
  - Fatigue [Unknown]
  - Dyspnoea [Unknown]
  - Arthropod sting [Unknown]
  - Swelling [Unknown]
  - Pruritus [Unknown]
  - Erythema [Unknown]
  - COVID-19 [Unknown]
  - Injection site haemorrhage [Unknown]
  - Headache [Unknown]
